FAERS Safety Report 13253848 (Version 1)
Quarter: 2017Q1

REPORT INFORMATION
  Report Type: Report from Study
  Country: US (occurrence: US)
  Receive Date: 20170220
  Receipt Date: 20170220
  Transmission Date: 20170428
  Serious: Yes (Other)
  Sender: FDA-Public Use
  Company Number: US-BRISTOL-MYERS SQUIBB COMPANY-21085873

PATIENT
  Age: 44 Year
  Sex: Female

DRUGS (1)
  1. BELATACEPT [Suspect]
     Active Substance: BELATACEPT
     Indication: RENAL TRANSPLANT
     Dosage: 750 MG, UNK
     Route: 042
     Dates: start: 20130221

REACTIONS (6)
  - Renal transplant failure [Unknown]
  - Cytomegalovirus viraemia [Unknown]
  - Kidney transplant rejection [Unknown]
  - Leukopenia [Unknown]
  - Hepatitis C [Unknown]
  - Dialysis [Unknown]

NARRATIVE: CASE EVENT DATE: 20131127
